FAERS Safety Report 5404913-3 (Version None)
Quarter: 2007Q3

REPORT INFORMATION
  Report Type: 
  Country: None (occurrence: None)
  Receive Date: 20070801
  Receipt Date: 20070801
  Transmission Date: 20080115
  Serious: No
  Sender: FDA-Public Use
  Company Number: None

PATIENT
  Sex: Female
  Weight: 92.5338 kg

DRUGS (6)
  1. ZOLOFT [Suspect]
     Indication: ANXIETY
     Dosage: ZOLOFT 100MG ONE QD PO
     Route: 048
     Dates: start: 20070719
  2. ZOLOFT [Suspect]
     Indication: BIPOLAR DISORDER
     Dosage: ZOLOFT 100MG ONE QD PO
     Route: 048
     Dates: start: 20070719
  3. ZOLOFT [Suspect]
     Indication: ANXIETY
     Dosage: ZOLOFT 100MG ONE QD PO
     Route: 048
     Dates: start: 20070720
  4. ZOLOFT [Suspect]
     Indication: BIPOLAR DISORDER
     Dosage: ZOLOFT 100MG ONE QD PO
     Route: 048
     Dates: start: 20070720
  5. ZOLOFT [Suspect]
     Indication: ANXIETY
     Dosage: ZOLOFT 100MG ONE QD PO
     Route: 048
     Dates: start: 20070721
  6. ZOLOFT [Suspect]
     Indication: BIPOLAR DISORDER
     Dosage: ZOLOFT 100MG ONE QD PO
     Route: 048
     Dates: start: 20070721

REACTIONS (3)
  - DYSPNOEA [None]
  - PHARYNGEAL OEDEMA [None]
  - RASH [None]
